FAERS Safety Report 20690863 (Version 1)
Quarter: 2022Q2

REPORT INFORMATION
  Report Type: Spontaneous
  Country: FR (occurrence: FR)
  Receive Date: 20220408
  Receipt Date: 20220408
  Transmission Date: 20220721
  Serious: Yes (Hospitalization)
  Sender: FDA-Public Use
  Company Number: None

PATIENT
  Age: 22 Year
  Sex: Female

DRUGS (9)
  1. CLOZAPINE [Suspect]
     Active Substance: CLOZAPINE
     Indication: Schizophrenia
     Dosage: 350MG, FREQUENCY TIME 1DAYS, DURATION 9DAYS
     Route: 048
     Dates: start: 20210126, end: 20210204
  2. CLOZAPINE [Suspect]
     Active Substance: CLOZAPINE
     Dosage: 250MG, FREQUENCY TIME 1DAYS,DURATION 2DAYS
     Route: 048
     Dates: start: 20210118, end: 20210120
  3. CLOZAPINE [Suspect]
     Active Substance: CLOZAPINE
     Dosage: 150MG,FREQUENCY TIME 1DAYS,DURATION 3DAYS
     Route: 048
     Dates: start: 20210111, end: 20210114
  4. CLOZAPINE [Suspect]
     Active Substance: CLOZAPINE
     Dosage: 50MG, FREQUENCY TIME 1DAYS,DURATION 5DAYS
     Route: 048
     Dates: start: 20201229, end: 20210103
  5. CLOZAPINE [Suspect]
     Active Substance: CLOZAPINE
     Dosage: 25MG,FREQUENCY TIME 1DAYS,DURATION 6DAYS
     Route: 048
     Dates: start: 20201222, end: 20201228
  6. CLOZAPINE [Suspect]
     Active Substance: CLOZAPINE
     Dosage: 75MG,FREQUENCY TIME 1DAYS,DURATION 1DAYS
     Route: 048
     Dates: start: 20210104, end: 20210105
  7. CLOZAPINE [Suspect]
     Active Substance: CLOZAPINE
     Dosage: 100MG,FREQUENCY TIME 1DAYS,DURATION 4DAYS
     Route: 048
     Dates: start: 20210106, end: 20210110
  8. CLOZAPINE [Suspect]
     Active Substance: CLOZAPINE
     Dosage: 300MG,FREQUENCY TIME 1DAYS,DURATION 4DAYS
     Route: 048
     Dates: start: 20210121, end: 20210125
  9. CLOZAPINE [Suspect]
     Active Substance: CLOZAPINE
     Dosage: 200MG,FREQUENCY TIME 1DAYS,DURATION 2DAYS
     Route: 048
     Dates: start: 20210115, end: 20210117

REACTIONS (1)
  - Epilepsy [Recovered/Resolved]

NARRATIVE: CASE EVENT DATE: 20210205
